FAERS Safety Report 6620474-5 (Version None)
Quarter: 2010Q1

REPORT INFORMATION
  Report Type: 
  Country: None (occurrence: None)
  Receive Date: 20100308
  Receipt Date: 20100308
  Transmission Date: 20100710
  Serious: Yes (Other)
  Sender: FDA-Public Use
  Company Number: None

PATIENT
  Age: 43 Year
  Sex: Female
  Weight: 104.3273 kg

DRUGS (2)
  1. AVELOX [Suspect]
     Indication: EAR INFECTION
  2. AVELOX [Suspect]
     Indication: SINUSITIS

REACTIONS (1)
  - ARTHRALGIA [None]
